FAERS Safety Report 6112443-9 (Version None)
Quarter: 2009Q1

REPORT INFORMATION
  Report Type: 
  Country: None (occurrence: None)
  Receive Date: 20090312
  Receipt Date: 20090305
  Transmission Date: 20090719
  Serious: Yes (Death, Hospitalization, Other)
  Sender: FDA-Public Use
  Company Number: PHHY2009BR08562

PATIENT

DRUGS (7)
  1. CYCLOSPORINE [Suspect]
     Indication: HEART TRANSPLANT
  2. PREDNISONE [Concomitant]
  3. MYCOPHENOLATE MOFETIL [Concomitant]
     Dosage: 500 MG, BID
  4. BENZNIDAZOLE [Concomitant]
  5. CYCLOPHOSPHAMIDE [Concomitant]
  6. DOXORUBICIN HCL [Concomitant]
  7. VINCRISTINE [Concomitant]

REACTIONS (18)
  - AMERICAN TRYPANOSOMIASIS [None]
  - B-CELL LYMPHOMA [None]
  - CARDIAC FAILURE [None]
  - CARDIOGENIC SHOCK [None]
  - COUGH [None]
  - EJECTION FRACTION DECREASED [None]
  - ENDOCARDITIS [None]
  - HEPATIC FUNCTION ABNORMAL [None]
  - LYMPHOPROLIFERATIVE DISORDER [None]
  - MASS [None]
  - MULTI-ORGAN FAILURE [None]
  - NEUTROPENIA [None]
  - PYREXIA [None]
  - RENAL IMPAIRMENT [None]
  - SEPSIS [None]
  - STAPHYLOCOCCAL INFECTION [None]
  - SURGERY [None]
  - VENTRICULAR HYPOKINESIA [None]
